FAERS Safety Report 9203262 (Version 2)
Quarter: 2013Q2

REPORT INFORMATION
  Report Type: Spontaneous
  Country: US (occurrence: US)
  Receive Date: 20130402
  Receipt Date: 20130506
  Transmission Date: 20140414
  Serious: No
  Sender: FDA-Public Use
  Company Number: US-009507513-1304USA000189

PATIENT
  Age: 56 Year
  Sex: Male

DRUGS (6)
  1. VICTRELIS [Suspect]
     Dosage: 800 MG, TID
     Route: 048
  2. PEGASYS [Suspect]
     Dosage: PROCLICK MONTHLY 180MCG/0.5ML
  3. RIBASPHERE [Suspect]
     Dosage: 200 MG
     Route: 048
  4. LISINOPRIL [Concomitant]
     Dosage: 10 MG
     Route: 048
  5. MILK THISTLE [Concomitant]
     Route: 048
  6. MIDODRINE HYDROCHLORIDE [Concomitant]
     Dosage: 10 MG
     Route: 048

REACTIONS (4)
  - Somnolence [Unknown]
  - Influenza like illness [Unknown]
  - Fatigue [Unknown]
  - Diarrhoea [Unknown]
